FAERS Safety Report 12299318 (Version 1)
Quarter: 2016Q2

REPORT INFORMATION
  Report Type: Spontaneous
  Country: JP (occurrence: JP)
  Receive Date: 20160425
  Receipt Date: 20160425
  Transmission Date: 20160815
  Serious: Yes (Hospitalization, Other)
  Sender: FDA-Public Use
  Company Number: JP-ACCORD-039687

PATIENT
  Age: 73 Year
  Sex: Female

DRUGS (2)
  1. CARBOPLATIN. [Suspect]
     Active Substance: CARBOPLATIN
     Indication: OVARIAN EPITHELIAL CANCER
     Dosage: DOSE: 200 MG/BODY (AREA UNDER THE CURVE 2)
  2. PACLITAXEL/PACLITAXEL LIPOSOME [Suspect]
     Active Substance: PACLITAXEL
     Indication: OVARIAN EPITHELIAL CANCER
     Dosage: DOSE: 210 MG/BODY (175 MG/M2).??RECEIVED TOTAL 03 CYCLE.

REACTIONS (5)
  - Acute megakaryocytic leukaemia [Not Recovered/Not Resolved]
  - Renal failure [Recovering/Resolving]
  - Pancytopenia [Recovering/Resolving]
  - Myelodysplastic syndrome [Unknown]
  - Urinary tract infection [Unknown]
